FAERS Safety Report 20890233 (Version 2)
Quarter: 2022Q2

REPORT INFORMATION
  Report Type: Spontaneous
  Country: US (occurrence: US)
  Receive Date: 20220530
  Receipt Date: 20220609
  Transmission Date: 20220721
  Serious: No
  Sender: FDA-Public Use
  Company Number: US-RECKITT BENCKISER HEALTHCARE INT LIMITED-RB-090134-2022

PATIENT
  Age: 2 Year

DRUGS (2)
  1. DELSYM [Suspect]
     Active Substance: DEXTROMETHORPHAN
     Indication: Product used for unknown indication
     Dosage: UNK
     Route: 048
  2. DELSYM [Suspect]
     Active Substance: DEXTROMETHORPHAN
     Route: 048

REACTIONS (3)
  - Unresponsive to stimuli [Not Recovered/Not Resolved]
  - Overdose [Not Recovered/Not Resolved]
  - Product administered to patient of inappropriate age [Not Recovered/Not Resolved]
